FAERS Safety Report 24222407 (Version 2)
Quarter: 2024Q3

REPORT INFORMATION
  Report Type: Spontaneous
  Country: BR (occurrence: BR)
  Receive Date: 20240819
  Receipt Date: 20240820
  Transmission Date: 20241016
  Serious: Yes (Life-Threatening, Hospitalization, Other)
  Sender: PFIZER
  Company Number: BR-PFIZER INC-PV202400104826

PATIENT
  Age: 18 Year
  Sex: Female

DRUGS (1)
  1. INFLIXIMAB [Suspect]
     Active Substance: INFLIXIMAB
     Indication: Crohn^s disease
     Dosage: UNK

REACTIONS (2)
  - Pemphigus [Recovering/Resolving]
  - Oral herpes [Recovering/Resolving]
